FAERS Safety Report 5641005-2 (Version None)
Quarter: 2008Q1

REPORT INFORMATION
  Report Type: 
  Country: None (occurrence: None)
  Receive Date: 20080225
  Receipt Date: 20080214
  Transmission Date: 20080703
  Serious: Yes (Hospitalization, Other)
  Sender: FDA-Public Use
  Company Number: WAES 0801FRA00083

PATIENT
  Age: 43 Year
  Sex: Female

DRUGS (5)
  1. JANUVIA [Suspect]
     Indication: TYPE 2 DIABETES MELLITUS
     Dosage: 100 MG/DAILY PO
     Route: 048
     Dates: start: 20071017, end: 20080126
  2. ALLOPURINOL [Concomitant]
  3. GLICLAZIDE [Concomitant]
  4. INDAPAMIDE (+) PERINDOPRIL ARGININE [Concomitant]
  5. METFORMIN HCL [Concomitant]

REACTIONS (4)
  - CHEST PAIN [None]
  - LARYNGITIS VIRAL [None]
  - PLEURAL EFFUSION [None]
  - PNEUMONIA [None]
